FAERS Safety Report 7183675-6 (Version None)
Quarter: 2010Q4

REPORT INFORMATION
  Report Type: 
  Country: None (occurrence: None)
  Receive Date: 20101222
  Receipt Date: 20101215
  Transmission Date: 20110411
  Serious: Yes (Other)
  Sender: FDA-Public Use
  Company Number: JP-PFIZER INC-2010174401

PATIENT
  Age: 75 Year

DRUGS (7)
  1. GEMTUZUMAB OZOGAMICIN [Suspect]
     Indication: ACUTE MYELOID LEUKAEMIA
     Dosage: 9 MG/M2 X 2 DOSES AT AN INTERVAL OF AT LEAST 14 DAYS
  2. IDARUBICIN HCL [Suspect]
     Indication: ACUTE MYELOID LEUKAEMIA
     Dosage: 12 MG/M2 X 2 DAYS FOR INDUCTION THERAPY
  3. IDARUBICIN HCL [Suspect]
     Dosage: 12 MG/M2 X 2 DAYS CONSOLIDATION THERAPY X1
  4. IDARUBICIN HCL [Suspect]
     Dosage: 12 MG/M2 X 1 DAY FOR CONSOLIDATION THERAPY X2
  5. CYTARABINE [Suspect]
     Indication: ACUTE MYELOID LEUKAEMIA
     Dosage: 100 MG/M2 X 5 DAYS INDUCTION THERAPY
  6. CYTARABINE [Suspect]
     Dosage: 100 MG/M2 X5 DAYS CONSOLIDATION THERAPY X 1
  7. CYTARABINE [Suspect]
     Dosage: 100 MG/M2 X5 DAYS CONSOLIDATION THERAPY X 2

REACTIONS (2)
  - FEBRILE NEUTROPENIA [None]
  - NEUTROPENIA [None]
